FAERS Safety Report 18303382 (Version 2)
Quarter: 2020Q4

REPORT INFORMATION
  Report Type: Spontaneous
  Country: US (occurrence: US)
  Receive Date: 20200923
  Receipt Date: 20201020
  Transmission Date: 20210113
  Serious: Yes (Hospitalization, Other)
  Sender: FDA-Public Use
  Company Number: US-ASTRAZENECA-2020SF21210

PATIENT
  Age: 75 Year
  Sex: Female
  Weight: 45.8 kg

DRUGS (12)
  1. NEXIUM [Interacting]
     Active Substance: ESOMEPRAZOLE MAGNESIUM
     Indication: GASTROOESOPHAGEAL REFLUX DISEASE
     Dosage: 1 CAPSULE, EVERY MORNING, BEFORE BREAKFAST
     Route: 048
  2. MYCOLOG II [Concomitant]
     Dosage: DOSE AND FREQUENCY UNKNOWN
     Route: 065
  3. ZOMIG [Interacting]
     Active Substance: ZOLMITRIPTAN
     Indication: MIGRAINE
     Dosage: AS NEEDED
     Route: 045
  4. VOLTAREN [Concomitant]
     Active Substance: DICLOFENAC SODIUM
     Dosage: DOSE AND FREQUENCY UNKNOWN
     Route: 065
  5. PROZAC [Concomitant]
     Active Substance: FLUOXETINE HYDROCHLORIDE
     Route: 065
  6. LISINOPRIL. [Concomitant]
     Active Substance: LISINOPRIL
     Route: 048
  7. ALDACTAZIDE [Concomitant]
     Active Substance: HYDROCHLOROTHIAZIDE\SPIRONOLACTONE
     Dosage: 25 MG/25 MG. 1 TABLET, EVERY DAY
     Route: 065
  8. VITAMIN E [Concomitant]
     Active Substance: .ALPHA.-TOCOPHEROL
     Dosage: 400 UNIT, TWO TIMES DAILY
     Route: 065
  9. ZOMIG [Suspect]
     Active Substance: ZOLMITRIPTAN
     Indication: MIGRAINE
     Dosage: USE 1 SPRAY IN 1 NOSTRIL AT ONSET OF MIGRAINE. MAY REPEAT IN 2 HOURS IF NEEDED. DO NOT EXCEED 5MG...
     Route: 045
  10. LISINOPRIL. [Concomitant]
     Active Substance: LISINOPRIL
     Route: 048
  11. LIORESAL [Concomitant]
     Active Substance: BACLOFEN
     Dosage: DOSE AND FREQUENCY UNKNOWN
     Route: 065
  12. ATIVAN [Concomitant]
     Active Substance: LORAZEPAM
     Dosage: 1 TO 2 TABLETS TWICE DAILY, AS NEEDED. MAX DAILY AMOUNT: 2 MG
     Route: 065

REACTIONS (14)
  - Drug interaction [Unknown]
  - Essential hypertension [Unknown]
  - Leukocytosis [Unknown]
  - Incontinence [Unknown]
  - Haemoglobin decreased [Unknown]
  - Gastrooesophageal reflux disease [Unknown]
  - Lung infiltration [Unknown]
  - Vomiting [Unknown]
  - Iron deficiency anaemia [Unknown]
  - Carotid arteriosclerosis [Unknown]
  - Syncope [Recovered/Resolved]
  - Iron deficiency [Unknown]
  - Carotid artery stenosis [Unknown]
  - Pericardial effusion [Unknown]

NARRATIVE: CASE EVENT DATE: 20150129
